FAERS Safety Report 9658294 (Version 1)
Quarter: 2013Q4

REPORT INFORMATION
  Report Type: Spontaneous
  Country: US (occurrence: US)
  Receive Date: 20131030
  Receipt Date: 20131030
  Transmission Date: 20140711
  Serious: No
  Sender: FDA-Public Use
  Company Number: US-PURDUE-USA-2012-0082355

PATIENT
  Age: 48 Year
  Sex: Female

DRUGS (1)
  1. OXYCONTIN (NDA 22-272) [Suspect]
     Indication: PAIN
     Dosage: 80 MG, BID
     Dates: start: 2010

REACTIONS (5)
  - Immobile [Unknown]
  - Drug effect decreased [Not Recovered/Not Resolved]
  - Inadequate analgesia [Unknown]
  - Gait disturbance [Unknown]
  - Pain [Unknown]
